FAERS Safety Report 18593036 (Version 2)
Quarter: 2020Q4

REPORT INFORMATION
  Report Type: Spontaneous
  Country: US (occurrence: US)
  Receive Date: 20201209
  Receipt Date: 20201220
  Transmission Date: 20210114
  Serious: No
  Sender: FDA-Public Use
  Company Number: US-JNJFOC-20201110539

PATIENT
  Age: 4 Decade
  Sex: Female
  Weight: 60 kg

DRUGS (1)
  1. NEUTROGENA T/GEL THERAPEUTIC [Suspect]
     Active Substance: COAL TAR\PYRITHIONE ZINC\SALICYLIC ACID
     Indication: DANDRUFF
     Dosage: JUST ENOUGH ONCE A WEEK.?PRODUCT WAS LAST USED ON 26-OCT-2020
     Route: 061
     Dates: start: 202010

REACTIONS (2)
  - Alopecia [Not Recovered/Not Resolved]
  - Product odour abnormal [Unknown]

NARRATIVE: CASE EVENT DATE: 202010
